FAERS Safety Report 9166022 (Version 2)
Quarter: 2013Q4

REPORT INFORMATION
  Report Type: Spontaneous
  Country: GB (occurrence: GB)
  Receive Date: 20130315
  Receipt Date: 20131202
  Transmission Date: 20140711
  Serious: Yes (Death, Other)
  Sender: FDA-Public Use
  Company Number: GB-PFIZER INC-2013087097

PATIENT
  Age: 98 Year
  Sex: Male
  Weight: 76.2 kg

DRUGS (5)
  1. SPIRONOLACTONE [Suspect]
     Indication: CARDIAC FAILURE CONGESTIVE
     Dosage: HALF DOSE
     Route: 048
     Dates: start: 20130115
  2. BISOPROLOL [Concomitant]
     Dosage: 10 MG, ONCE DAILY
  3. LISINOPRIL [Concomitant]
  4. ASPIRIN [Concomitant]
  5. FUROSEMIDE [Concomitant]
     Dosage: 40 MG, ONCE DAILY

REACTIONS (8)
  - Myocardial infarction [Fatal]
  - Circumstance or information capable of leading to medication error [Unknown]
  - Oedema peripheral [Not Recovered/Not Resolved]
  - Somnolence [Unknown]
  - Dyspnoea [Unknown]
  - Tremor [Unknown]
  - Confusional state [Unknown]
  - Condition aggravated [Unknown]
